FAERS Safety Report 8815636 (Version 1)
Quarter: 2012Q4

REPORT INFORMATION
  Report Type: Report from Study
  Country: GB (occurrence: MY)
  Receive Date: 20120928
  Receipt Date: 20120928
  Transmission Date: 20130627
  Serious: Yes (Death, Hospitalization)
  Sender: FDA-Public Use
  Company Number: MY-ELI_LILLY_AND_COMPANY-MY201209006892

PATIENT
  Age: 48 Year
  Sex: Female
  Weight: 70.7 kg

DRUGS (2)
  1. GEMCITABINE HYDROCHLORIDE [Suspect]
     Indication: LUNG NEOPLASM MALIGNANT
     Dosage: 2090 mg, UNK
     Route: 042
     Dates: start: 20120413, end: 20120413
  2. CISPLATIN [Suspect]
     Indication: LUNG NEOPLASM MALIGNANT
     Dosage: 126 mg, UNK
     Route: 042
     Dates: start: 20120413, end: 20120413

REACTIONS (1)
  - Anaemia [Fatal]
